FAERS Safety Report 13162553 (Version 2)
Quarter: 2017Q1

REPORT INFORMATION
  Report Type: Spontaneous
  Country: US (occurrence: US)
  Receive Date: 20170130
  Receipt Date: 20170327
  Transmission Date: 20170428
  Serious: No
  Sender: FDA-Public Use
  Company Number: US-PFIZER INC-2017033831

PATIENT
  Sex: Female

DRUGS (4)
  1. VANCOMYCIN [Concomitant]
     Active Substance: VANCOMYCIN
     Indication: ABSCESS LIMB
     Dosage: UNK
     Route: 042
     Dates: start: 201701, end: 201701
  2. AMBIEN [Concomitant]
     Active Substance: ZOLPIDEM TARTRATE
     Indication: SLEEP DISORDER
     Dosage: 5 MG, UNK
  3. TRAMADOL. [Concomitant]
     Active Substance: TRAMADOL
     Indication: ARTHRITIS
  4. LINEZOLID. [Suspect]
     Active Substance: LINEZOLID
     Indication: ABSCESS LIMB
     Dosage: 600 MG, 2X/DAY
     Dates: start: 201701, end: 201702

REACTIONS (2)
  - Diarrhoea [Recovered/Resolved]
  - Insomnia [Unknown]

NARRATIVE: CASE EVENT DATE: 2017
